FAERS Safety Report 13237657 (Version 3)
Quarter: 2017Q1

REPORT INFORMATION
  Report Type: Report from Study
  Country: None (occurrence: IE)
  Receive Date: 20170215
  Receipt Date: 20170315
  Transmission Date: 20170428
  Serious: Yes (Life-Threatening, Hospitalization)
  Sender: FDA-Public Use
  Company Number: IE-ABBVIE-17K-229-1867789-00

PATIENT
  Age: 43 Year
  Sex: Female
  Weight: 80 kg

DRUGS (1)
  1. HUMIRA [Suspect]
     Active Substance: ADALIMUMAB
     Indication: PSORIATIC ARTHROPATHY
     Dosage: SINGLE DOSE GIVEN
     Route: 030
     Dates: start: 20170203, end: 20170203

REACTIONS (11)
  - Blood pressure decreased [Recovered/Resolved]
  - Amnesia [Unknown]
  - Incorrect route of drug administration [Unknown]
  - Syncope [Recovered/Resolved]
  - Pruritus [Recovered/Resolved]
  - Rash [Recovered/Resolved]
  - Feeling abnormal [Recovered/Resolved]
  - Vomiting [Recovered/Resolved]
  - Memory impairment [Recovered/Resolved]
  - Somnolence [Recovered/Resolved]
  - Heart rate decreased [Recovered/Resolved]

NARRATIVE: CASE EVENT DATE: 20170203
